FAERS Safety Report 14651092 (Version 5)
Quarter: 2018Q3

REPORT INFORMATION
  Report Type: Spontaneous
  Country: FR (occurrence: FR)
  Receive Date: 20180316
  Receipt Date: 20180730
  Transmission Date: 20181010
  Serious: Yes (Other)
  Sender: FDA-Public Use
  Company Number: FR-GILEAD-2016-0216060

PATIENT
  Age: 32 Year
  Sex: Female

DRUGS (8)
  1. TENOFOVIR DISOPROXIL FUMARATE. [Suspect]
     Active Substance: TENOFOVIR DISOPROXIL FUMARATE
     Indication: ANTIRETROVIRAL THERAPY
  2. EMTRIVA [Suspect]
     Active Substance: EMTRICITABINE
     Indication: HIV INFECTION
     Dosage: UNK UNKNOWN, UNK
     Route: 065
  3. TENOFOVIR DISOPROXIL FUMARATE. [Suspect]
     Active Substance: TENOFOVIR DISOPROXIL FUMARATE
     Indication: HIV INFECTION
     Dosage: UNK UNKNOWN, UNK
     Route: 065
  4. ETONOGESTREL [Interacting]
     Active Substance: ETONOGESTREL
     Indication: CONTRACEPTION
  5. EMTRIVA [Suspect]
     Active Substance: EMTRICITABINE
     Indication: ANTIRETROVIRAL THERAPY
  6. EFAVIRENZ. [Interacting]
     Active Substance: EFAVIRENZ
     Indication: HIV INFECTION
     Dosage: UNK UNKNOWN, UNK
     Route: 065
  7. EFAVIRENZ. [Interacting]
     Active Substance: EFAVIRENZ
     Indication: ANTIRETROVIRAL THERAPY
  8. ETONOGESTREL [Interacting]
     Active Substance: ETONOGESTREL
     Indication: CONTRACEPTIVE IMPLANT
     Dosage: UNK UNKNOWN, UNK
     Route: 059
     Dates: start: 201007

REACTIONS (5)
  - Pregnancy with implant contraceptive [Recovered/Resolved]
  - Product use issue [Unknown]
  - Abortion induced [Recovered/Resolved]
  - Labelled drug-drug interaction medication error [Unknown]
  - Maternal exposure during pregnancy [Recovered/Resolved]
